FAERS Safety Report 5287484-4 (Version None)
Quarter: 2007Q1

REPORT INFORMATION
  Report Type: 
  Country: None (occurrence: None)
  Receive Date: 20070116
  Receipt Date: 20060920
  Transmission Date: 20070707
  Serious: No
  Sender: FDA-Public Use
  Company Number: 2006SP003358

PATIENT
  Age: 47 Year
  Sex: Male
  Weight: 78.0187 kg

DRUGS (3)
  1. LUNESTA [Suspect]
     Indication: INSOMNIA
     Dosage: 3 MG; HS; ORAL
     Route: 048
     Dates: start: 20060101, end: 20060919
  2. ATENOLOL [Concomitant]
  3. ALTACE [Concomitant]

REACTIONS (6)
  - ANXIETY [None]
  - DRUG INEFFECTIVE [None]
  - FEELING JITTERY [None]
  - HEART RATE INCREASED [None]
  - MIDDLE INSOMNIA [None]
  - PALPITATIONS [None]
